FAERS Safety Report 23697943 (Version 2)
Quarter: 2024Q2

REPORT INFORMATION
  Report Type: Report from Study
  Country: EG (occurrence: EG)
  Receive Date: 20240402
  Receipt Date: 20240621
  Transmission Date: 20240716
  Serious: No
  Sender: FDA-Public Use
  Company Number: EG-SANDOZ-SDZ2023EG021472

PATIENT
  Age: 11 Year
  Sex: Female
  Weight: 31.5 kg

DRUGS (3)
  1. OMNITROPE [Suspect]
     Active Substance: SOMATROPIN
     Indication: Growth hormone deficiency
     Dosage: 10 MG/1.5 ML
     Route: 058
     Dates: start: 202301, end: 202303
  2. OMNITROPE [Suspect]
     Active Substance: SOMATROPIN
     Dosage: UNK
     Route: 065
     Dates: start: 20230325
  3. Micort [Concomitant]
     Indication: Glucocorticoid deficiency
     Dosage: UNK
     Route: 048

REACTIONS (7)
  - Injection site pain [Recovered/Resolved]
  - Product availability issue [Recovered/Resolved]
  - Product label issue [Unknown]
  - Product dose omission issue [Unknown]
  - Multiple use of single-use product [Unknown]
  - Wrong technique in device usage process [Unknown]
  - Device issue [Unknown]

NARRATIVE: CASE EVENT DATE: 20230101
